FAERS Safety Report 19389045 (Version 1)
Quarter: 2021Q2

REPORT INFORMATION
  Report Type: Other
  Country: US (occurrence: US)
  Receive Date: 20210608
  Receipt Date: 20210608
  Transmission Date: 20210717
  Serious: Yes (Hospitalization, Other)
  Sender: FDA-Public Use
  Company Number: US-ROCHE-2840289

PATIENT
  Age: 43 Year
  Sex: Female
  Weight: 77.18 kg

DRUGS (21)
  1. OCREVUS [Suspect]
     Active Substance: OCRELIZUMAB
     Indication: RELAPSING-REMITTING MULTIPLE SCLEROSIS
     Dosage: DATE OF TREATMENT: 24/OCT/2018, 07/NOV/2018, 24/MAY/2019, 27/NOV/2019, 15/JUN/2020,
     Route: 042
     Dates: start: 2018
  2. FLEXERIL [Concomitant]
     Active Substance: CYCLOBENZAPRINE HYDROCHLORIDE
  3. WARFARIN [Concomitant]
     Active Substance: WARFARIN
     Indication: INTRACARDIAC THROMBUS
     Route: 048
     Dates: start: 20210203
  4. PRILOSEC [Concomitant]
     Active Substance: OMEPRAZOLE MAGNESIUM
  5. ROSUVASTATIN. [Concomitant]
     Active Substance: ROSUVASTATIN
  6. GABAPENTIN. [Concomitant]
     Active Substance: GABAPENTIN
     Indication: NEURALGIA
     Route: 048
  7. ZANTAC [Concomitant]
     Active Substance: RANITIDINE HYDROCHLORIDE
  8. PEPCID AC [Concomitant]
     Active Substance: FAMOTIDINE
  9. AMITRIPTYLINE [Concomitant]
     Active Substance: AMITRIPTYLINE
  10. METFORMIN [Suspect]
     Active Substance: METFORMIN HYDROCHLORIDE
     Indication: TYPE 2 DIABETES MELLITUS
     Route: 065
     Dates: start: 201903, end: 201903
  11. SPIRONOLACTONE. [Concomitant]
     Active Substance: SPIRONOLACTONE
     Indication: HYPERTENSION
     Route: 048
  12. PREDNISONE. [Suspect]
     Active Substance: PREDNISONE
     Indication: ENDOCARDITIS
     Dosage: FOR 10 DAYS
     Route: 065
     Dates: start: 20210116, end: 20210126
  13. BABY ASPIRIN [Concomitant]
     Active Substance: ASPIRIN
     Route: 048
  14. IMITREX [Concomitant]
     Active Substance: SUMATRIPTAN SUCCINATE
  15. NOVOLOG [Concomitant]
     Active Substance: INSULIN ASPART
  16. JARDIANCE [Concomitant]
     Active Substance: EMPAGLIFLOZIN
     Indication: TYPE 2 DIABETES MELLITUS
     Route: 048
     Dates: start: 201903
  17. SPIRONOLACTONE. [Concomitant]
     Active Substance: SPIRONOLACTONE
     Indication: HEART RATE INCREASED
  18. METOPROLOL SUCCINATE ER [Concomitant]
     Active Substance: METOPROLOL SUCCINATE
     Indication: HYPERTENSION
     Route: 048
  19. MECLIZINE [Concomitant]
     Active Substance: MECLIZINE HYDROCHLORIDE
  20. POTASSIUM CHLORIDE. [Concomitant]
     Active Substance: POTASSIUM CHLORIDE
     Indication: BLOOD POTASSIUM DECREASED
     Route: 048
     Dates: start: 20210208
  21. ISOSORBIDE MONONITRATE. [Concomitant]
     Active Substance: ISOSORBIDE MONONITRATE
     Indication: HEART RATE INCREASED
     Dates: start: 202001

REACTIONS (24)
  - Dehydration [Recovered/Resolved]
  - Tachycardia [Recovering/Resolving]
  - Constipation [Recovering/Resolving]
  - Myocardial infarction [Recovering/Resolving]
  - Vomiting [Not Recovered/Not Resolved]
  - Heart rate increased [Not Recovered/Not Resolved]
  - Insulin resistant diabetes [Recovering/Resolving]
  - Loss of consciousness [Recovered/Resolved]
  - Blood potassium decreased [Unknown]
  - Endocarditis [Recovered/Resolved]
  - Peripheral swelling [Unknown]
  - Chest pain [Recovering/Resolving]
  - Type 2 diabetes mellitus [Not Recovered/Not Resolved]
  - Urinary retention [Unknown]
  - Blood cholesterol increased [Recovering/Resolving]
  - Lip injury [Recovered/Resolved]
  - Illness [Recovered/Resolved]
  - Pain in extremity [Recovered/Resolved]
  - Fluid retention [Unknown]
  - Coronary artery dissection [Recovering/Resolving]
  - Intracardiac thrombus [Recovering/Resolving]
  - Gastric disorder [Recovered/Resolved]
  - Abdominal distension [Not Recovered/Not Resolved]
  - Gastric disorder [Recovering/Resolving]

NARRATIVE: CASE EVENT DATE: 201803
